FAERS Safety Report 12428570 (Version 1)
Quarter: 2016Q2

REPORT INFORMATION
  Report Type: Spontaneous
  Country: US (occurrence: US)
  Receive Date: 20160602
  Receipt Date: 20160602
  Transmission Date: 20160815
  Serious: No
  Sender: FDA-Public Use
  Company Number: US-BAUSCH-BL-2016-004165

PATIENT
  Age: 67 Year
  Sex: Female
  Weight: 61.29 kg

DRUGS (5)
  1. ELIDEL [Suspect]
     Active Substance: PIMECROLIMUS
     Indication: PRURITUS
  2. GLIPIZIDE. [Concomitant]
     Active Substance: GLIPIZIDE
     Indication: DIABETES MELLITUS
     Dosage: AS NEEDED
     Route: 048
  3. ELIDEL [Suspect]
     Active Substance: PIMECROLIMUS
     Indication: EYE PRURITUS
     Route: 061
     Dates: start: 20160215, end: 20160217
  4. LOSARTAN. [Concomitant]
     Active Substance: LOSARTAN
     Indication: HYPERTENSION
     Dosage: AS NEEDED
     Route: 048
  5. GLIPIZIDE. [Concomitant]
     Active Substance: GLIPIZIDE
     Route: 048

REACTIONS (1)
  - Eye swelling [Not Recovered/Not Resolved]

NARRATIVE: CASE EVENT DATE: 20160217
